FAERS Safety Report 12682724 (Version 1)
Quarter: 2016Q3

REPORT INFORMATION
  Report Type: Report from Study
  Country: KR (occurrence: KR)
  Receive Date: 20160825
  Receipt Date: 20160825
  Transmission Date: 20161109
  Serious: Yes (Hospitalization)
  Sender: FDA-Public Use
  Company Number: KR-ABBVIE-16K-090-1706213-00

PATIENT
  Age: 64 Year
  Sex: Male
  Weight: 64 kg

DRUGS (21)
  1. LIMAPROST [Concomitant]
     Active Substance: LIMAPROST
     Indication: VASODILATATION
     Route: 048
  2. BIGSON [Concomitant]
     Indication: NEUROSIS
     Route: 048
  3. CALTEO [Concomitant]
     Indication: TOOTH MALFORMATION
  4. LEODASE [Concomitant]
     Indication: SWELLING
     Route: 048
  5. MIRAPEX [Concomitant]
     Active Substance: PRAMIPEXOLE DIHYDROCHLORIDE
     Indication: PARKINSONISM
     Route: 048
  6. LIMAPROST [Concomitant]
     Active Substance: LIMAPROST
     Indication: THROMBOSIS PROPHYLAXIS
  7. FEROBA U [Concomitant]
     Indication: ANAEMIA PROPHYLAXIS
     Route: 048
  8. ETRAVIL [Concomitant]
     Active Substance: AMITRIPTYLINE HYDROCHLORIDE
     Indication: DEPRESSION
     Route: 048
  9. GAMOCID [Concomitant]
     Indication: PRODUCT USED FOR UNKNOWN INDICATION
     Route: 048
  10. LIMAPROST [Concomitant]
     Active Substance: LIMAPROST
     Indication: SPINAL COLUMN STENOSIS
  11. CALTEO [Concomitant]
     Indication: BONE DEVELOPMENT ABNORMAL
  12. PREBALIN [Concomitant]
     Indication: PAIN IN EXTREMITY
  13. PREBALIN [Concomitant]
     Indication: SEIZURE
     Route: 048
  14. PREBALIN [Concomitant]
     Indication: PARTIAL SEIZURES
  15. MAGMIL [Concomitant]
     Active Substance: MAGNESIUM HYDROXIDE
     Indication: ANTACID THERAPY
  16. LESCOL XL [Concomitant]
     Active Substance: FLUVASTATIN SODIUM
     Indication: HYPERLIPIDAEMIA
     Route: 048
  17. LIMAPROST [Concomitant]
     Active Substance: LIMAPROST
     Indication: ANTIPLATELET THERAPY
  18. CALTEO [Concomitant]
     Indication: CALCIUM DEFICIENCY
     Route: 048
  19. MAGMIL [Concomitant]
     Active Substance: MAGNESIUM HYDROXIDE
     Indication: CONSTIPATION
     Route: 048
  20. ETRAVIL [Concomitant]
     Active Substance: AMITRIPTYLINE HYDROCHLORIDE
     Indication: MIGRAINE PROPHYLAXIS
  21. HUMIRA [Suspect]
     Active Substance: ADALIMUMAB
     Indication: RHEUMATOID ARTHRITIS
     Route: 058
     Dates: start: 20160303, end: 20160717

REACTIONS (1)
  - Spinal column stenosis [Recovering/Resolving]

NARRATIVE: CASE EVENT DATE: 20160715
